FAERS Safety Report 25753360 (Version 1)
Quarter: 2025Q3

REPORT INFORMATION
  Report Type: Spontaneous
  Country: US (occurrence: US)
  Receive Date: 20250903
  Receipt Date: 20250903
  Transmission Date: 20251021
  Serious: No
  Sender: SANOFI AVENTIS
  Company Number: US-SA-2025SA260755

PATIENT
  Age: 16 Year
  Sex: Female

DRUGS (1)
  1. DUPIXENT [Suspect]
     Active Substance: DUPILUMAB
     Indication: Eczema
     Dosage: 300 MG, QOW
     Route: 058
     Dates: start: 201808, end: 202507

REACTIONS (4)
  - Eczema [Unknown]
  - Rash erythematous [Unknown]
  - Skin exfoliation [Unknown]
  - Rebound effect [Unknown]

NARRATIVE: CASE EVENT DATE: 20250101
